FAERS Safety Report 6404345-5 (Version None)
Quarter: 2009Q4

REPORT INFORMATION
  Report Type: 
  Country: None (occurrence: None)
  Receive Date: 20091016
  Receipt Date: 20090810
  Transmission Date: 20100525
  Serious: Yes (Life-Threatening, Hospitalization)
  Sender: FDA-Public Use
  Company Number: US-CELGENEUS-163-21880-09040041

PATIENT
  Sex: Male

DRUGS (4)
  1. REVLIMID [Suspect]
     Route: 048
     Dates: start: 20090310, end: 20090320
  2. REVLIMID [Suspect]
     Route: 048
     Dates: start: 20090325, end: 20090401
  3. REVLIMID [Suspect]
     Route: 048
     Dates: start: 20090423, end: 20090602
  4. REVLIMID [Suspect]
     Route: 048
     Dates: start: 20090603

REACTIONS (2)
  - EMBOLISM [None]
  - RENAL FAILURE [None]
